FAERS Safety Report 5952021-5 (Version None)
Quarter: 2008Q4

REPORT INFORMATION
  Report Type: 
  Country: None (occurrence: None)
  Receive Date: 20081113
  Receipt Date: 20071203
  Transmission Date: 20090506
  Serious: No
  Sender: FDA-Public Use
  Company Number: A0696991A

PATIENT
  Age: 71 Year
  Sex: Female

DRUGS (13)
  1. COREG [Suspect]
     Dosage: 25MG TWICE PER DAY
     Route: 048
     Dates: start: 20000101
  2. LIPITOR [Concomitant]
  3. ZETIA [Concomitant]
  4. COUMADIN [Concomitant]
  5. BENICAR [Concomitant]
  6. SYNTHROID [Concomitant]
  7. NEXIUM [Concomitant]
  8. POTASSIUM CHLORIDE [Concomitant]
  9. BUMETANIDE [Concomitant]
  10. ASPIRIN [Concomitant]
  11. THYROXIN [Concomitant]
  12. VITAMIN B-12 [Concomitant]
  13. VIT D [Concomitant]

REACTIONS (2)
  - DYSPNOEA [None]
  - THERAPEUTIC RESPONSE UNEXPECTED [None]
